FAERS Safety Report 8318944-7 (Version None)
Quarter: 2012Q2

REPORT INFORMATION
  Report Type: 
  Country: None (occurrence: None)
  Receive Date: 20120427
  Receipt Date: 20120419
  Transmission Date: 20120825
  Serious: Yes (Other)
  Sender: FDA-Public Use
  Company Number: US-JNJFOC-20120410271

PATIENT
  Sex: Female
  Weight: 62.6 kg

DRUGS (4)
  1. NUCYNTA [Suspect]
     Dosage: 50 MG EVERY 4-6 HOURS
     Route: 048
     Dates: start: 20110901, end: 20110901
  2. PERCOCET [Concomitant]
     Indication: PAIN
     Route: 065
  3. NUCYNTA [Suspect]
     Indication: PAIN
     Route: 048
     Dates: start: 20120301
  4. NUCYNTA [Suspect]
     Route: 048
     Dates: start: 20120301, end: 20120301

REACTIONS (10)
  - WRONG TECHNIQUE IN DRUG USAGE PROCESS [None]
  - NAUSEA [None]
  - SPEECH DISORDER [None]
  - ADVERSE EVENT [None]
  - PALPITATIONS [None]
  - ASTHENIA [None]
  - DRUG INEFFECTIVE [None]
  - MAJOR DEPRESSION [None]
  - DYSPNOEA [None]
  - CONFUSIONAL STATE [None]
